FAERS Safety Report 15417301 (Version 1)
Quarter: 2018Q3

REPORT INFORMATION
  Report Type: Spontaneous
  Country: US (occurrence: US)
  Receive Date: 20180924
  Receipt Date: 20180924
  Transmission Date: 20181010
  Serious: No
  Sender: FDA-Public Use
  Company Number: US-AUROBINDO-AUR-APU-2017-38908

PATIENT
  Age: 61 Year
  Sex: Male

DRUGS (1)
  1. DEXTROAMPHETAMINE SULFATE TABLETS, USP 10 MG [Suspect]
     Active Substance: DEXTROAMPHETAMINE SULFATE
     Indication: ATTENTION DEFICIT/HYPERACTIVITY DISORDER
     Dosage: 10 MG, UNK
     Route: 065
     Dates: start: 20170628, end: 20170707

REACTIONS (11)
  - Product solubility abnormal [Unknown]
  - Hyperpyrexia [Unknown]
  - Nausea [Recovered/Resolved]
  - Dizziness [Recovered/Resolved]
  - Hyperhidrosis [Unknown]
  - Product physical issue [Unknown]
  - Flushing [Unknown]
  - Somnolence [Recovered/Resolved]
  - Drug ineffective [Unknown]
  - Product colour issue [Recovered/Resolved]
  - Product taste abnormal [Recovered/Resolved]

NARRATIVE: CASE EVENT DATE: 20170628
